FAERS Safety Report 4407879-8 (Version None)
Quarter: 2004Q3

REPORT INFORMATION
  Report Type: 
  Country: None (occurrence: None)
  Receive Date: 20040721
  Receipt Date: 20040707
  Transmission Date: 20050211
  Serious: Yes (Death)
  Sender: FDA-Public Use
  Company Number: USA040466321

PATIENT
  Age: 51 Year
  Sex: Male
  Weight: 72 kg

DRUGS (19)
  1. XIGRIS [Suspect]
     Indication: SEPSIS
     Dosage: 24 UG/KG/HR
     Dates: start: 20040428
  2. DECADRON [Concomitant]
  3. DOPAMINE HCL [Concomitant]
  4. ALBUMIN (HUMAN) [Concomitant]
  5. TYLENOL [Concomitant]
  6. PEPCID [Concomitant]
  7. PROTONIX [Concomitant]
  8. KAYEXALATE [Concomitant]
  9. GENTAMYCIN SULFATE [Concomitant]
  10. HALDOL [Concomitant]
  11. DILAUDID [Concomitant]
  12. SYNTHROID [Concomitant]
  13. VERSED [Concomitant]
  14. SODIUM BICARBONATE [Concomitant]
  15. LASIX [Concomitant]
  16. LEVOPHED [Concomitant]
  17. CALCIUM CHLORIDE [Concomitant]
  18. FLAGYL (METRONIDAZOLE BENZOATE) [Concomitant]
  19. UNASYN (SULTAMICILLIN TOSILATE) [Concomitant]

REACTIONS (12)
  - ACTIVATED PARTIAL THROMBOPLASTIN TIME PROLONGED [None]
  - ANAEMIA [None]
  - ATHEROSCLEROSIS [None]
  - BLOOD PRESSURE DECREASED [None]
  - BODY TEMPERATURE DECREASED [None]
  - CARDIAC FAILURE CONGESTIVE [None]
  - CARDIO-RESPIRATORY ARREST [None]
  - HYPERTENSION [None]
  - OXYGEN SATURATION DECREASED [None]
  - PROCEDURAL COMPLICATION [None]
  - PROTHROMBIN TIME PROLONGED [None]
  - RESPIRATORY RATE INCREASED [None]
